FAERS Safety Report 12990294 (Version 6)
Quarter: 2017Q2

REPORT INFORMATION
  Report Type: Spontaneous
  Country: US (occurrence: US)
  Receive Date: 20161201
  Receipt Date: 20170524
  Transmission Date: 20170830
  Serious: Yes (Other)
  Sender: FDA-Public Use
  Company Number: US-PFIZER INC-2016548459

PATIENT
  Age: 54 Year
  Sex: Female

DRUGS (15)
  1. MYRBETRIQ [Suspect]
     Active Substance: MIRABEGRON
     Dosage: 75 MG, UNK
     Dates: start: 201607
  2. SIMVASTATIN. [Concomitant]
     Active Substance: SIMVASTATIN
     Dosage: UNK
     Dates: start: 2014
  3. POTASSIUM [Concomitant]
     Active Substance: POTASSIUM
     Dosage: UNK
     Dates: start: 2014
  4. HYDROCHLOROTHIAZIDE. [Concomitant]
     Active Substance: HYDROCHLOROTHIAZIDE
     Dosage: UNK
     Dates: start: 2014
  5. CEFUROXIME. [Suspect]
     Active Substance: CEFUROXIME
     Dosage: 500 MG, 2X/DAY
  6. PAXIL [Concomitant]
     Active Substance: PAROXETINE HYDROCHLORIDE
     Dosage: UNK
     Dates: start: 2014
  7. ENZALUTAMIDE [Concomitant]
     Active Substance: ENZALUTAMIDE
     Dosage: UNK
  8. MYRBETRIQ [Suspect]
     Active Substance: MIRABEGRON
     Indication: HYPERTONIC BLADDER
     Dosage: 25 MG, 1X/DAY [ONCE DAILY]
     Route: 048
     Dates: start: 20161010
  9. RISPERIDONE. [Concomitant]
     Active Substance: RISPERIDONE
     Dosage: UNK
     Dates: start: 2014
  10. HALDOL [Concomitant]
     Active Substance: HALOPERIDOL
     Dosage: UNK
     Dates: start: 2014
  11. KLONOPIN [Concomitant]
     Active Substance: CLONAZEPAM
     Dosage: UNK
     Dates: start: 2014
  12. MYRBETRIQ [Suspect]
     Active Substance: MIRABEGRON
     Indication: URINARY INCONTINENCE
     Dosage: 25 MG, 1X/DAY
     Route: 048
     Dates: start: 201609
  13. MYRBETRIQ [Suspect]
     Active Substance: MIRABEGRON
     Dosage: 50 MG, UNK [25 MG THEN 50 MG]
  14. AZO [Suspect]
     Active Substance: PHENAZOPYRIDINE HYDROCHLORIDE
     Dosage: UNK
  15. COGENTIN [Concomitant]
     Active Substance: BENZTROPINE MESYLATE
     Dosage: UNK
     Dates: start: 2014

REACTIONS (9)
  - Drug ineffective [Unknown]
  - Drug intolerance [Unknown]
  - Cystitis [Recovering/Resolving]
  - Photophobia [Recovered/Resolved]
  - Feeling drunk [Unknown]
  - Headache [Recovered/Resolved]
  - Sinus disorder [Not Recovered/Not Resolved]
  - Dysgeusia [Recovered/Resolved]
  - Overdose [Unknown]

NARRATIVE: CASE EVENT DATE: 201607
